FAERS Safety Report 5287752-6 (Version None)
Quarter: 2007Q2

REPORT INFORMATION
  Report Type: 
  Country: None (occurrence: None)
  Receive Date: 20070405
  Receipt Date: 20070325
  Transmission Date: 20071010
  Serious: Yes (Death)
  Sender: FDA-Public Use
  Company Number: IL-NOVOPROD-262049

PATIENT
  Age: 12 Year
  Sex: Female
  Weight: 30.5 kg

DRUGS (2)
  1. NOVOSEVEN [Suspect]
     Indication: HAEMORRHAGE
     Dosage: 3.6 MG, SINGLE
     Route: 042
     Dates: start: 20070312
  2. NOVOSEVEN [Suspect]
     Dosage: 3.6 MG, SINGLE
     Route: 042
     Dates: start: 20070312

REACTIONS (2)
  - DRUG INEFFECTIVE [None]
  - INTESTINAL ISCHAEMIA [None]
